FAERS Safety Report 24666055 (Version 1)
Quarter: 2024Q4

REPORT INFORMATION
  Report Type: Spontaneous
  Country: US (occurrence: US)
  Receive Date: 20241126
  Receipt Date: 20241126
  Transmission Date: 20250115
  Serious: No
  Sender: Harrow Health
  Company Number: US-IMP-2024000956

PATIENT
  Age: 64 Year
  Sex: Male

DRUGS (1)
  1. TOBRADEX ST [Suspect]
     Active Substance: DEXAMETHASONE\TOBRAMYCIN
     Indication: Ear infection
     Dosage: 3 DROPS IN BOTH EARS THREE TIMES DAILY
     Route: 001
     Dates: start: 20241103

REACTIONS (2)
  - Product prescribing issue [Unknown]
  - Product packaging quantity issue [Unknown]

NARRATIVE: CASE EVENT DATE: 20241103
